FAERS Safety Report 4546653-9 (Version None)
Quarter: 2005Q1

REPORT INFORMATION
  Report Type: 
  Country: None (occurrence: None)
  Receive Date: 20050103
  Receipt Date: 20041220
  Transmission Date: 20050727
  Serious: Yes (Death, Hospitalization, Other)
  Sender: FDA-Public Use
  Company Number: 2004111006

PATIENT
  Age: 72 Year
  Sex: Male

DRUGS (6)
  1. PRODILANTIN (FOSPHENYTOIN SODIUM) [Suspect]
     Indication: ILL-DEFINED DISORDER
     Dosage: 500 MG (500 MG, 1 IN 1 D), INTRAVENOUS
     Route: 042
     Dates: start: 20031203, end: 20031209
  2. FLAGYL I.V. [Suspect]
     Indication: ILL-DEFINED DISORDER
     Dosage: 1.5 GRAM (1.5 GRAM, 1 IN 1 D), INTRAVENOUS
     Route: 042
     Dates: start: 20031204, end: 20031213
  3. PHENYTOIN [Suspect]
     Indication: CONVULSION
     Dosage: 500 MG (500 MG, 1 IN 1 D), ORAL
     Route: 048
     Dates: start: 20031209, end: 20031213
  4. VANCOMYCIN [Suspect]
     Indication: ILL-DEFINED DISORDER
     Dosage: (2 GRAM, DAILY) INTRAVENOUS
     Route: 042
     Dates: start: 20031206, end: 20031213
  5. PRIMAXIN [Suspect]
     Indication: ILL-DEFINED DISORDER
     Dosage: 1.5 GRAM (1.5 GRAM, 1 IN 1 D), INTRAVENOUS
     Route: 042
     Dates: start: 20031204, end: 20031213
  6. ACETAMINOPHEN [Suspect]
     Indication: ILL-DEFINED DISORDER
     Dosage: 3 GRAM (1 GRAM, 3 IN 1 D), INTRAVENOUS
     Route: 042
     Dates: start: 20031107, end: 20031213

REACTIONS (5)
  - DUODENAL ULCER PERFORATION [None]
  - PERITONITIS [None]
  - SEPTIC SHOCK [None]
  - STEVENS-JOHNSON SYNDROME [None]
  - TOXIC EPIDERMAL NECROLYSIS [None]
